FAERS Safety Report 17971923 (Version 4)
Quarter: 2020Q4

REPORT INFORMATION
  Report Type: Spontaneous
  Country: CA (occurrence: CA)
  Receive Date: 20200702
  Receipt Date: 20201210
  Transmission Date: 20210113
  Serious: Yes (Other)
  Sender: FDA-Public Use
  Company Number: CA-CELLTRION INC.-2019CA028534

PATIENT

DRUGS (6)
  1. INFLECTRA [Suspect]
     Active Substance: INFLIXIMAB-DYYB
     Dosage: 5 MG/KG, (500 MG) EVERY 8 WEEKS
     Route: 042
     Dates: start: 20200625
  2. INFLECTRA [Suspect]
     Active Substance: INFLIXIMAB-DYYB
     Dosage: 5 MG/KG, (500 MG) EVERY 8 WEEKS
     Route: 042
     Dates: start: 20200306
  3. MYCOPHENOLATE [Concomitant]
     Active Substance: MYCOPHENOLIC ACID
     Dosage: 1000 MG, 1X/DAY
     Route: 048
  4. INFLECTRA [Suspect]
     Active Substance: INFLIXIMAB-DYYB
     Indication: CROHN^S DISEASE
     Dosage: 5 MG/KG, (500 MG) EVERY 8 WEEKS
     Route: 042
     Dates: start: 20200110
  5. INFLECTRA [Suspect]
     Active Substance: INFLIXIMAB-DYYB
     Dosage: 5 MG/KG, (500 MG) EVERY 8 WEEKS
     Route: 042
     Dates: start: 20200501
  6. SIROLIMUS. [Concomitant]
     Active Substance: SIROLIMUS
     Dosage: 5 MG, 1X/DAY
     Route: 048

REACTIONS (4)
  - Prostate cancer [Unknown]
  - Off label use [Unknown]
  - Drug ineffective [Not Recovered/Not Resolved]
  - Intentional product use issue [Unknown]
